FAERS Safety Report 23392208 (Version 1)
Quarter: 2024Q1

REPORT INFORMATION
  Report Type: Spontaneous
  Country: US (occurrence: US)
  Receive Date: 20240111
  Receipt Date: 20240111
  Transmission Date: 20240410
  Serious: No
  Sender: FDA-Public Use
  Company Number: US-PFIZER INC-202300247586

PATIENT
  Age: 22 Year
  Sex: Female

DRUGS (2)
  1. CIBINQO [Suspect]
     Active Substance: ABROCITINIB
     Indication: Dermatitis atopic
     Dosage: 100 MG, 1X/DAY
  2. EUCRISA [Concomitant]
     Active Substance: CRISABOROLE
     Indication: Alopecia areata
     Dosage: 1 APPLICATION ON THE SKIN DAILY APPLY TO AA ON BODY
     Route: 061

REACTIONS (1)
  - Condition aggravated [Recovering/Resolving]
